FAERS Safety Report 7255999-5 (Version None)
Quarter: 2011Q1

REPORT INFORMATION
  Report Type: 
  Country: None (occurrence: None)
  Receive Date: 20110129
  Receipt Date: 20100520
  Transmission Date: 20110831
  Serious: Yes (Hospitalization)
  Sender: FDA-Public Use
  Company Number: US-ABBOTT-10P-163-0646227-00

PATIENT
  Sex: Male

DRUGS (3)
  1. HUMIRA [Suspect]
     Indication: CROHN'S DISEASE
     Dosage: ONCE, 1ST LOADING DOSE
     Dates: start: 20100125, end: 20100125
  2. HUMIRA [Suspect]
     Route: 058
     Dates: start: 20100208, end: 20100208
  3. HUMIRA [Suspect]
     Route: 058

REACTIONS (2)
  - INCORRECT DOSE ADMINISTERED [None]
  - ROAD TRAFFIC ACCIDENT [None]
